FAERS Safety Report 9241107 (Version 1)
Quarter: 2013Q1

REPORT INFORMATION
  Report Type: Spontaneous
  Country: US (occurrence: None)
  Receive Date: 20121120
  Receipt Date: 20121120
  Transmission Date: 20140127
  Serious: No
  Sender: FDA-Public Use
  Company Number: 1000039139

PATIENT
  Age: 52 Year
  Sex: Female

DRUGS (4)
  1. VIIBRYD [Suspect]
     Indication: DEPRESSION
     Route: 048
     Dates: start: 201209, end: 201209
  2. DIOVAN (VALSARTAN) [Concomitant]
  3. ATORVASTATIN (ATORVASTATIN) [Concomitant]
  4. SYNTHROID (LEVOTHYROXINE SODIUM) [Concomitant]

REACTIONS (5)
  - Anxiety [None]
  - Flatulence [None]
  - Diarrhoea [None]
  - Feeling jittery [None]
  - Insomnia [None]
